FAERS Safety Report 7325952-1 (Version None)
Quarter: 2011Q1

REPORT INFORMATION
  Report Type: 
  Country: None (occurrence: None)
  Receive Date: 20110302
  Receipt Date: 20110125
  Transmission Date: 20110831
  Serious: Yes (Death)
  Sender: FDA-Public Use
  Company Number: US-TYCO HEALTHCARE/MALLINCKRODT-T201100440

PATIENT
  Age: 59 Year
  Sex: Female

DRUGS (4)
  1. MELOXICAM [Suspect]
     Route: 048
  2. OXYCODONE/ACETAMINOPHEN [Suspect]
     Route: 048
  3. AMITRIPTYLINE [Suspect]
     Route: 048
  4. LISINOPRIL HYDROCHLORTHIAZID [Suspect]
     Route: 048

REACTIONS (2)
  - CARDIO-RESPIRATORY ARREST [None]
  - COMPLETED SUICIDE [None]
